FAERS Safety Report 10030428 (Version 2)
Quarter: 2014Q1

REPORT INFORMATION
  Report Type: Spontaneous
  Country: US (occurrence: US)
  Receive Date: 20140323
  Receipt Date: 20140323
  Transmission Date: 20141002
  Serious: No
  Sender: FDA-Public Use
  Company Number: US-ALLERGAN-1402309US

PATIENT
  Age: 29 Year
  Sex: Female

DRUGS (3)
  1. LATISSE 0.03% [Suspect]
     Indication: GROWTH OF EYELASHES
     Dosage: 1 GTT, UNK
     Route: 061
     Dates: start: 201310
  2. LIOTRIX [Concomitant]
     Indication: HYPOTHYROIDISM
     Dosage: 25 ?G, QD
     Route: 048
  3. CLONAZEPAM [Concomitant]
     Indication: SLEEP DISORDER
     Dosage: 0.5 MG, QD
     Route: 048

REACTIONS (4)
  - Iris disorder [Not Recovered/Not Resolved]
  - Incorrect dose administered [Unknown]
  - Wrong technique in drug usage process [Unknown]
  - Iris hyperpigmentation [Not Recovered/Not Resolved]
